FAERS Safety Report 6671106-1 (Version None)
Quarter: 2010Q2

REPORT INFORMATION
  Report Type: 
  Country: None (occurrence: None)
  Receive Date: 20100407
  Receipt Date: 20100325
  Transmission Date: 20101027
  Serious: Yes (Hospitalization)
  Sender: FDA-Public Use
  Company Number: PHHY2010BE14939

PATIENT
  Sex: Female

DRUGS (3)
  1. GLEEVEC [Suspect]
     Indication: ACUTE LYMPHOCYTIC LEUKAEMIA
     Dosage: 600 MG
  2. METHOTREXATE [Suspect]
  3. ANTIBIOTICS [Suspect]

REACTIONS (6)
  - HAEMATURIA [None]
  - HYDRONEPHROSIS [None]
  - PNEUMONIA [None]
  - URETERAL STENT INSERTION [None]
  - URETHRAL DILATATION [None]
  - URINARY RETENTION [None]
